FAERS Safety Report 8275348 (Version 2)
Quarter: 2013Q1

REPORT INFORMATION
  Report Type: Spontaneous
  Country: FR (occurrence: FR)
  Receive Date: 20111205
  Receipt Date: 20130116
  Transmission Date: 20140127
  Serious: Yes (Life-Threatening, Hospitalization, Other)
  Sender: FDA-Public Use
  Company Number: PHHY2011FR105511

PATIENT
  Age: 71 Year
  Sex: Female

DRUGS (8)
  1. CERTICAN [Suspect]
     Dosage: UNK
  2. CERTICAN [Suspect]
     Dosage: 3 MG, UNK
     Dates: start: 20110506
  3. PANTOPRAZOLE [Suspect]
  4. CELLCEPT [Suspect]
     Dosage: 1.5 MG, UNK
     Dates: start: 2007
  5. LYRICA [Suspect]
     Dosage: UNK UKN, UNK
     Dates: start: 201107
  6. ARANESP [Suspect]
     Dosage: UNK UKN, UNK
     Dates: start: 200907
  7. KARDEGIC [Suspect]
     Dosage: UNK UKN, UNK
     Dates: start: 2007
  8. ESOMEPRAZOLE [Concomitant]

REACTIONS (8)
  - Pneumonia [Recovered/Resolved]
  - Cough [Unknown]
  - Pyrexia [Recovered/Resolved]
  - Malaise [Unknown]
  - Productive cough [Unknown]
  - Bacterial infection [Recovering/Resolving]
  - Diarrhoea [Unknown]
  - Vomiting [Unknown]
